FAERS Safety Report 14747694 (Version 1)
Quarter: 2018Q2

REPORT INFORMATION
  Report Type: Spontaneous
  Country: JP (occurrence: JP)
  Receive Date: 20180411
  Receipt Date: 20180411
  Transmission Date: 20180711
  Serious: Yes (Other)
  Sender: FDA-Public Use
  Company Number: JP-TAKEDA-2018TJP009835

PATIENT
  Age: 78 Year
  Sex: Male

DRUGS (1)
  1. SONIAS COMBINATION TABLETS HD [Suspect]
     Active Substance: GLIMEPIRIDE\PIOGLITAZONE HYDROCHLORIDE
     Indication: DIABETES MELLITUS
     Dosage: 30MG PIOGLITAZONE W (33.06MG PIOGLITAZONE HYDROCHLORIDE) + 3MG GLIMEPIRIDE
     Route: 048

REACTIONS (3)
  - Hypoglycaemia [Unknown]
  - Cognitive disorder [Unknown]
  - Renal impairment [Unknown]
